FAERS Safety Report 6993517-7 (Version None)
Quarter: 2010Q3

REPORT INFORMATION
  Report Type: 
  Country: None (occurrence: None)
  Receive Date: 20100917
  Receipt Date: 20100430
  Transmission Date: 20110219
  Serious: No
  Sender: FDA-Public Use
  Company Number: US-ASTRAZENECA-2010SE19839

PATIENT
  Sex: Female
  Weight: 63.5 kg

DRUGS (1)
  1. SEROQUEL XR [Suspect]
     Indication: BIPOLAR I DISORDER
     Route: 048

REACTIONS (3)
  - DRUG DOSE OMISSION [None]
  - HOT FLUSH [None]
  - HYPERHIDROSIS [None]
